APPROVED DRUG PRODUCT: LIDOCAINE
Active Ingredient: LIDOCAINE
Strength: 5%
Dosage Form/Route: PATCH;TOPICAL
Application: A202346 | Product #001 | TE Code: AB
Applicant: PHARMOBEDIENT CONSULTING LLC
Approved: Aug 7, 2015 | RLD: No | RS: No | Type: RX